FAERS Safety Report 14275109 (Version 2)
Quarter: 2018Q1

REPORT INFORMATION
  Report Type: Spontaneous
  Country: GB (occurrence: GB)
  Receive Date: 20171212
  Receipt Date: 20180125
  Transmission Date: 20180508
  Serious: Yes (Other)
  Sender: FDA-Public Use
  Company Number: GB-ROCHE-2032445

PATIENT
  Age: 49 Year
  Sex: Female

DRUGS (6)
  1. METHYLPREDNISOLONE. [Concomitant]
     Active Substance: METHYLPREDNISOLONE
     Dosage: ESCALATION TO 2MG/KG DOSE OF (METHYL) PREDNISOLONE
     Route: 065
  2. MYCOPHENOLATE MOFETIL. [Suspect]
     Active Substance: MYCOPHENOLATE MOFETIL
     Indication: VANISHING BILE DUCT SYNDROME
     Route: 048
  3. URSODEOXYCHOLIC ACID [Concomitant]
     Active Substance: URSODIOL
     Indication: VANISHING BILE DUCT SYNDROME
     Route: 065
  4. PREDNISOLONE. [Suspect]
     Active Substance: PREDNISOLONE
     Indication: VANISHING BILE DUCT SYNDROME
     Route: 048
  5. METHYLPREDNISOLONE. [Concomitant]
     Active Substance: METHYLPREDNISOLONE
     Indication: AUTOIMMUNE HEPATITIS
     Dosage: ESCALATION TO 2MG/KG DOSE OF (METHYL) PREDNISOLONE
     Route: 065
  6. PEMBROLIZUMAB. [Concomitant]
     Active Substance: PEMBROLIZUMAB
     Indication: METASTASES TO CENTRAL NERVOUS SYSTEM
     Dosage: THREE WEEKLY CYCLES
     Route: 065

REACTIONS (4)
  - Type 1 diabetes mellitus [Unknown]
  - Neutropenia [Unknown]
  - Spinal compression fracture [Unknown]
  - Drug ineffective [Unknown]
